FAERS Safety Report 9891184 (Version 2)
Quarter: 2014Q1

REPORT INFORMATION
  Report Type: Spontaneous
  Country: IT (occurrence: IT)
  Receive Date: 20140212
  Receipt Date: 20140314
  Transmission Date: 20141002
  Serious: Yes (Hospitalization)
  Sender: FDA-Public Use
  Company Number: IT-TEVA-460897ISR

PATIENT
  Age: 77 Year
  Sex: Male

DRUGS (7)
  1. AMOXICILLIN TRIHYDRATE [Suspect]
     Indication: UPPER RESPIRATORY TRACT INFECTION
     Dates: start: 20131203, end: 20131207
  2. SINTROM - 4 MG COMPRESSE NOVARTIS FARMA S.P.A. [Interacting]
     Indication: ATRIAL FIBRILLATION
     Dosage: 1 DF AS NECESSARY
     Route: 048
     Dates: start: 20120101, end: 20131209
  3. SUTENT [Concomitant]
     Indication: PRODUCT USED FOR UNKNOWN INDICATION
     Dates: start: 20120101, end: 20131209
  4. OMNIC [Concomitant]
     Indication: PRODUCT USED FOR UNKNOWN INDICATION
     Dates: start: 20120101, end: 20131209
  5. PARIET [Concomitant]
     Indication: PRODUCT USED FOR UNKNOWN INDICATION
     Dates: start: 20120101, end: 20131209
  6. DELTACORTENE - 25 MG COMPRESSE [Concomitant]
     Indication: PRODUCT USED FOR UNKNOWN INDICATION
     Dates: start: 20120101, end: 20131209
  7. CONTRAMAL - 50 MG CAPSULE RIGIDE [Concomitant]
     Indication: PRODUCT USED FOR UNKNOWN INDICATION
     Dates: start: 20120101, end: 20131209

REACTIONS (17)
  - Cardiac arrest [Fatal]
  - Drug interaction [Recovering/Resolving]
  - Haematemesis [Recovering/Resolving]
  - Hypocoagulable state [Recovering/Resolving]
  - Macrocytosis [Unknown]
  - Thrombocytopenia [Unknown]
  - Biliary sepsis [Unknown]
  - Hepatitis [Unknown]
  - Cholelithiasis [Unknown]
  - Hernia [Unknown]
  - Dry skin [Unknown]
  - Tongue dry [Unknown]
  - Atrial fibrillation [Unknown]
  - Asthenia [Unknown]
  - Abdominal distension [Unknown]
  - Wheezing [Unknown]
  - Tachypnoea [Unknown]
